FAERS Safety Report 22629583 (Version 1)
Quarter: 2023Q2

REPORT INFORMATION
  Report Type: Spontaneous
  Country: US (occurrence: US)
  Receive Date: 20230622
  Receipt Date: 20230622
  Transmission Date: 20230722
  Serious: Yes (Life-Threatening, Other)
  Sender: FDA-Public Use
  Company Number: US-PFIZER INC-PV202300108511

PATIENT
  Age: 73 Year
  Sex: Female

DRUGS (3)
  1. HEPARIN SODIUM [Suspect]
     Active Substance: HEPARIN SODIUM
     Indication: May-Thurner syndrome
     Dosage: UNK (DRIP)
  2. RIVAROXABAN [Concomitant]
     Active Substance: RIVAROXABAN
     Indication: May-Thurner syndrome
     Dosage: UNK
  3. CLOPIDOGREL [Concomitant]
     Active Substance: CLOPIDOGREL BISULFATE
     Indication: May-Thurner syndrome
     Dosage: UNK

REACTIONS (1)
  - Blood loss anaemia [Unknown]
